FAERS Safety Report 9758365 (Version 1)
Quarter: 2013Q4

REPORT INFORMATION
  Report Type: Spontaneous
  Country: US (occurrence: None)
  Receive Date: 20131213
  Receipt Date: 20131213
  Transmission Date: 20140711
  Serious: Yes (Other)
  Sender: FDA-Public Use
  Company Number: None

PATIENT
  Age: 75 Year
  Sex: Female
  Weight: 53.2 kg

DRUGS (3)
  1. CAPECITABINE [Suspect]
  2. IRINOTECAN [Suspect]
  3. OXALIPLATIN [Suspect]

REACTIONS (4)
  - Dehydration [None]
  - Hypokalaemia [None]
  - Vomiting [None]
  - Diarrhoea [None]
